FAERS Safety Report 6255366-7 (Version None)
Quarter: 2009Q3

REPORT INFORMATION
  Report Type: 
  Country: None (occurrence: None)
  Receive Date: 20090702
  Receipt Date: 20090626
  Transmission Date: 20100115
  Serious: Yes (Other)
  Sender: FDA-Public Use
  Company Number: CA-AMGEN-QUU340878

PATIENT
  Sex: Female

DRUGS (2)
  1. ENBREL [Suspect]
     Indication: RHEUMATOID ARTHRITIS
     Route: 058
     Dates: start: 20090201, end: 20090315
  2. PREDNISONE [Concomitant]
     Route: 048

REACTIONS (4)
  - AUTOIMMUNE INNER EAR DISEASE [None]
  - DEAFNESS UNILATERAL [None]
  - EMBOLISM [None]
  - VIRAL LABYRINTHITIS [None]
